FAERS Safety Report 6903040-3 (Version None)
Quarter: 2010Q3

REPORT INFORMATION
  Report Type: 
  Country: None (occurrence: None)
  Receive Date: 20100803
  Receipt Date: 20080814
  Transmission Date: 20110219
  Serious: No
  Sender: FDA-Public Use
  Company Number: US-PFIZER INC-2008066896

PATIENT
  Sex: Male

DRUGS (1)
  1. LYRICA [Suspect]
     Indication: NEURALGIA
     Dates: start: 20080601

REACTIONS (7)
  - BACK PAIN [None]
  - CONSTIPATION [None]
  - DRUG EFFECT DECREASED [None]
  - DRY MOUTH [None]
  - PAIN IN EXTREMITY [None]
  - SOMNOLENCE [None]
  - WEIGHT INCREASED [None]
